FAERS Safety Report 9019699 (Version 1)
Quarter: 2013Q1

REPORT INFORMATION
  Report Type: Report from Study
  Country: US (occurrence: US)
  Receive Date: 20130118
  Receipt Date: 20130118
  Transmission Date: 20140127
  Serious: Yes (Other)
  Sender: FDA-Public Use
  Company Number: US-ROCHE-1176321

PATIENT
  Age: 33 None
  Sex: Female

DRUGS (8)
  1. OMALIZUMAB [Suspect]
     Indication: ASTHMA
     Dosage: LAST DOSE TAKEN: 300MG LAST DOSE PRIOR TO EVENT 25 APR 2012
     Route: 065
     Dates: start: 20090114
  2. NEXIUM [Concomitant]
     Indication: GASTROOESOPHAGEAL REFLUX DISEASE
     Route: 048
  3. ZOLOFT [Concomitant]
     Indication: DEPRESSION
     Route: 048
  4. ADVAIR [Concomitant]
     Indication: ASTHMA
     Route: 065
  5. PROAIR (UNITED STATES) [Concomitant]
     Indication: ASTHMA
     Route: 065
  6. MOTRIN [Concomitant]
     Indication: HEADACHE
     Route: 048
  7. MOTRIN [Concomitant]
     Indication: PAIN
  8. TOVIAZ [Concomitant]
     Route: 048

REACTIONS (1)
  - Thyroid mass [Not Recovered/Not Resolved]
